FAERS Safety Report 24071558 (Version 1)
Quarter: 2024Q3

REPORT INFORMATION
  Report Type: Report from Study
  Country: US (occurrence: US)
  Receive Date: 20240710
  Receipt Date: 20240710
  Transmission Date: 20241017
  Serious: No
  Sender: ROCHE
  Company Number: US-ROCHE-3505840

PATIENT
  Age: 11 Year
  Sex: Female
  Weight: 24.6 kg

DRUGS (1)
  1. EVRYSDI [Suspect]
     Active Substance: RISDIPLAM
     Indication: Spinal muscular atrophy
     Dosage: (6.6 ML)
     Route: 050
     Dates: start: 2020

REACTIONS (2)
  - Petechiae [Unknown]
  - Contusion [Unknown]

NARRATIVE: CASE EVENT DATE: 20230101
